FAERS Safety Report 5672041-8 (Version None)
Quarter: 2008Q2

REPORT INFORMATION
  Report Type: 
  Country: None (occurrence: None)
  Receive Date: 20080219
  Receipt Date: 20071120
  Transmission Date: 20081010
  Serious: Yes (Hospitalization)
  Sender: FDA-Public Use
  Company Number: TPA2007A02391

PATIENT
  Age: 84 Year
  Sex: Female
  Weight: 53.0709 kg

DRUGS (6)
  1. ROZEREM [Suspect]
     Indication: INSOMNIA
     Dosage: 8 MG, ONCE, PER ORAL ; 8 MG, ONCE, PER ORAL
     Route: 048
     Dates: start: 20070301, end: 20070301
  2. ROZEREM [Suspect]
     Indication: INSOMNIA
     Dosage: 8 MG, ONCE, PER ORAL ; 8 MG, ONCE, PER ORAL
     Route: 048
     Dates: start: 20071108, end: 20071108
  3. ATIVAN [Suspect]
     Indication: INSOMNIA
     Dosage: QHS, PER ORAL
     Route: 048
     Dates: end: 20070301
  4. LEVOXYL (LEVOTHYROXINE SODIUM) (UNKNOWN) [Concomitant]
  5. POLYETHYLENE GLYCOL (MACROGOL) (UNKNOWN) [Concomitant]
  6. ASPIRIN [Concomitant]

REACTIONS (3)
  - DIZZINESS [None]
  - MIDDLE INSOMNIA [None]
  - SLEEP APNOEA SYNDROME [None]
